FAERS Safety Report 20610343 (Version 2)
Quarter: 2024Q2

REPORT INFORMATION
  Report Type: Spontaneous
  Country: US (occurrence: US)
  Receive Date: 20220318
  Receipt Date: 20240408
  Transmission Date: 20240716
  Serious: No
  Sender: FDA-Public Use
  Company Number: US-UCBSA-2021054902

PATIENT
  Sex: Female

DRUGS (2)
  1. BRIVIACT [Suspect]
     Active Substance: BRIVARACETAM
     Indication: Seizure
     Dosage: UNK
  2. BRIVIACT [Suspect]
     Active Substance: BRIVARACETAM
     Dosage: OCCASIONALLY TAKING AN EXTRA DOSE UP TO 400 MG/DAY)

REACTIONS (4)
  - Seizure [Unknown]
  - Extra dose administered [Unknown]
  - Overdose [Unknown]
  - Product use issue [Unknown]
